FAERS Safety Report 21609013 (Version 3)
Quarter: 2023Q1

REPORT INFORMATION
  Report Type: Spontaneous
  Country: US (occurrence: US)
  Receive Date: 20221117
  Receipt Date: 20230316
  Transmission Date: 20230418
  Serious: Yes (Life-Threatening, Other)
  Sender: FDA-Public Use
  Company Number: US-002147023-NVSC2022US258083

PATIENT
  Sex: Female

DRUGS (2)
  1. LEQVIO [Suspect]
     Active Substance: INCLISIRAN SODIUM
     Indication: Hyperlipidaemia
     Dosage: UNK, Q 6 MONTH
     Route: 058
     Dates: start: 20221102
  2. LEQVIO [Suspect]
     Active Substance: INCLISIRAN SODIUM
     Dosage: UNK, Q 6 MONTH
     Route: 058
     Dates: start: 20230102

REACTIONS (8)
  - Ill-defined disorder [Unknown]
  - Feeling abnormal [Unknown]
  - Urinary tract infection [Unknown]
  - Body temperature increased [Unknown]
  - Asthenia [Unknown]
  - Pain [Unknown]
  - Feeding disorder [Unknown]
  - Influenza [Unknown]
